FAERS Safety Report 4492811-1 (Version None)
Quarter: 2004Q4

REPORT INFORMATION
  Report Type: 
  Country: None (occurrence: None)
  Receive Date: 20041102
  Receipt Date: 20041015
  Transmission Date: 20050328
  Serious: Yes (Hospitalization)
  Sender: FDA-Public Use
  Company Number: B01200401936

PATIENT
  Age: 78 Year
  Sex: Female

DRUGS (7)
  1. CLOPIDOGREL - TABLET - 75 MG [Suspect]
     Indication: ISCHAEMIA
     Dosage: 75 MG QD, ORAL
     Route: 048
     Dates: start: 20031024
  2. CLOPIDOGREL - TABLET - 75 MG [Suspect]
     Indication: PROPHYLAXIS
     Dosage: 75 MG QD, ORAL
     Route: 048
     Dates: start: 20031024
  3. ACETYLSALICYLIC ACID SRT [Concomitant]
  4. NOVOMIX (INSULIN ASPART) [Concomitant]
  5. BRISERIN (CLOPAMIDE/DIHYDROERGOCRISTINE MESILATE/RESERPINE) [Concomitant]
  6. NOCTAMID (LORMETAZEPAM) [Concomitant]
  7. SIMVASTATIN [Concomitant]

REACTIONS (1)
  - OVARIAN NEOPLASM [None]
